FAERS Safety Report 4807526-7 (Version None)
Quarter: 2005Q4

REPORT INFORMATION
  Report Type: 
  Country: None (occurrence: None)
  Receive Date: 20051020
  Receipt Date: 20050401
  Transmission Date: 20060501
  Serious: Yes (Other)
  Sender: FDA-Public Use
  Company Number: C-05-0026

PATIENT
  Age: 49 Year
  Sex: Female
  Weight: 58.9676 kg

DRUGS (4)
  1. MGP  (LINDANE LOTION, USP 1%) CODE 8546 [Suspect]
     Indication: LICE INFESTATION
     Dosage: APPLIED TO AFFECTED AREAS OVERNIGHT, REPEATED AT 10 DAYS, TOPICALLY
     Route: 061
     Dates: start: 20041115, end: 20041125
  2. MEDPERIDINE/PROMETHAZINE [Concomitant]
  3. ALPRAZOLAM [Concomitant]
  4. CYCLOBENZAPRINE HCL [Concomitant]

REACTIONS (6)
  - EAR INFECTION [None]
  - ERYTHEMA [None]
  - EYE DISORDER [None]
  - OTORRHOEA [None]
  - PRURITUS [None]
  - SWELLING [None]
